FAERS Safety Report 12473379 (Version 2)
Quarter: 2016Q2

REPORT INFORMATION
  Report Type: Spontaneous
  Country: JP (occurrence: JP)
  Receive Date: 20160616
  Receipt Date: 20160629
  Transmission Date: 20160815
  Serious: Yes (Hospitalization)
  Sender: FDA-Public Use
  Company Number: JP-SA-2016SA110366

PATIENT
  Age: 83 Year
  Sex: Male

DRUGS (3)
  1. PLAVIX [Suspect]
     Active Substance: CLOPIDOGREL BISULFATE
     Indication: ACUTE MYOCARDIAL INFARCTION
     Route: 065
  2. PRASUGREL [Concomitant]
     Active Substance: PRASUGREL
  3. ACETYLSALICYLIC ACID [Suspect]
     Active Substance: ASPIRIN
     Indication: ACUTE MYOCARDIAL INFARCTION
     Route: 065

REACTIONS (9)
  - Blood pressure decreased [Unknown]
  - Haemobilia [Unknown]
  - Haematoma [Unknown]
  - Haemorrhagic ascites [Unknown]
  - Cholecystitis [Unknown]
  - Necrosis [Unknown]
  - Gallbladder enlargement [Unknown]
  - Abdominal pain upper [Unknown]
  - Gallbladder perforation [Unknown]
